FAERS Safety Report 7555954-1 (Version None)
Quarter: 2011Q2

REPORT INFORMATION
  Report Type: 
  Country: None (occurrence: None)
  Receive Date: 20110618
  Receipt Date: 20110617
  Transmission Date: 20111010
  Serious: Yes (Death, Hospitalization)
  Sender: FDA-Public Use
  Company Number: TR-ABBOTT-11P-161-0732898-00

PATIENT
  Age: 32 Year
  Sex: Female
  Weight: 80 kg

DRUGS (6)
  1. BACTRIM [Concomitant]
     Indication: PRODUCT USED FOR UNKNOWN INDICATION
     Dosage: 800/160MG
     Route: 042
     Dates: end: 20110226
  2. PREDNOL [Concomitant]
     Indication: PRODUCT USED FOR UNKNOWN INDICATION
     Route: 042
     Dates: end: 20110226
  3. MAXIPIME [Concomitant]
     Indication: PRODUCT USED FOR UNKNOWN INDICATION
     Route: 042
     Dates: end: 20110226
  4. ISOTONIK SOLUTION [Concomitant]
     Indication: PRODUCT USED FOR UNKNOWN INDICATION
     Route: 042
     Dates: end: 20110226
  5. HUMIRA [Suspect]
     Indication: CROHN'S DISEASE
     Route: 058
     Dates: start: 20101101, end: 20110226
  6. CLARITHROMYCIN [Concomitant]
     Indication: PRODUCT USED FOR UNKNOWN INDICATION
     Dates: end: 20110226

REACTIONS (9)
  - PULMONARY ALVEOLAR HAEMORRHAGE [None]
  - IMMUNOSUPPRESSION [None]
  - LOWER RESPIRATORY TRACT INFECTION [None]
  - DISSEMINATED TUBERCULOSIS [None]
  - OLIGURIA [None]
  - ACUTE RESPIRATORY FAILURE [None]
  - COUGH [None]
  - RENAL FAILURE ACUTE [None]
  - LUNG INFILTRATION [None]
